FAERS Safety Report 16070046 (Version 1)
Quarter: 2019Q1

REPORT INFORMATION
  Report Type: Report from Study
  Country: US (occurrence: US)
  Receive Date: 20190314
  Receipt Date: 20190314
  Transmission Date: 20190418
  Serious: Yes (Hospitalization)
  Sender: FDA-Public Use
  Company Number: US-BIOGEN-2019BI00709969

PATIENT
  Sex: Female
  Weight: 73.55 kg

DRUGS (1)
  1. TECFIDERA [Suspect]
     Active Substance: DIMETHYL FUMARATE
     Indication: MULTIPLE SCLEROSIS
     Route: 048
     Dates: start: 20170902

REACTIONS (4)
  - Hypertension [Recovered/Resolved]
  - Amnesia [Recovered/Resolved]
  - Pneumonia bacterial [Not Recovered/Not Resolved]
  - Influenza [Not Recovered/Not Resolved]
